FAERS Safety Report 17552773 (Version 1)
Quarter: 2020Q1

REPORT INFORMATION
  Report Type: Spontaneous
  Country: US (occurrence: US)
  Receive Date: 20200310
  Receipt Date: 20200310
  Transmission Date: 20200409
  Serious: No
  Sender: FDA-Public Use
  Company Number: None

PATIENT
  Age: 8 Year
  Sex: Female

DRUGS (2)
  1. MEKINIST [Suspect]
     Active Substance: TRAMETINIB DIMETHYL SULFOXIDE
  2. MEKINIST [Suspect]
     Active Substance: TRAMETINIB DIMETHYL SULFOXIDE
     Route: 048
     Dates: start: 201912

REACTIONS (2)
  - Brain neoplasm [None]
  - Off label use [None]

NARRATIVE: CASE EVENT DATE: 20200310
